FAERS Safety Report 9046526 (Version 1)
Quarter: 2013Q1

REPORT INFORMATION
  Report Type: Spontaneous
  Country: US (occurrence: None)
  Receive Date: 20130128
  Receipt Date: 20130128
  Transmission Date: 20140127
  Serious: Yes (Hospitalization)
  Sender: FDA-Public Use
  Company Number: None

PATIENT
  Age: 30 Year
  Sex: Male
  Weight: 90.72 kg

DRUGS (1)
  1. BACTRIM [Suspect]
     Indication: ACNE
     Dates: start: 20120725, end: 20120813

REACTIONS (6)
  - Nasopharyngitis [None]
  - Pyrexia [None]
  - Cough [None]
  - Lymphadenopathy [None]
  - Ocular hyperaemia [None]
  - Headache [None]
